FAERS Safety Report 8584606-4 (Version None)
Quarter: 2012Q3

REPORT INFORMATION
  Report Type: 
  Country: None (occurrence: None)
  Receive Date: 20120802
  Receipt Date: 20120802
  Transmission Date: 20120928
  Serious: Yes (Hospitalization)
  Sender: FDA-Public Use
  Company Number: None

PATIENT
  Sex: Male
  Weight: 65 kg

DRUGS (2)
  1. PACLITAXEL [Suspect]
     Dosage: 89 MG
     Dates: start: 20120710
  2. CISPLATIN [Suspect]
     Dosage: 15 MG
     Dates: start: 20120710

REACTIONS (3)
  - PYREXIA [None]
  - WHITE BLOOD CELL COUNT DECREASED [None]
  - NEUTROPHIL COUNT DECREASED [None]
